FAERS Safety Report 14068013 (Version 2)
Quarter: 2017Q4

REPORT INFORMATION
  Report Type: Spontaneous
  Country: IN (occurrence: IN)
  Receive Date: 20171010
  Receipt Date: 20171017
  Transmission Date: 20180321
  Serious: Yes (Life-Threatening, Hospitalization, Other)
  Sender: FDA-Public Use
  Company Number: IN-SUN PHARMACEUTICAL INDUSTRIES LTD-2017R1-151814

PATIENT
  Sex: Female

DRUGS (4)
  1. TRAMADOL. [Suspect]
     Active Substance: TRAMADOL
     Indication: MUSCULOSKELETAL PAIN
     Dosage: 300 MG, DAILY
  2. TRAMADOL. [Suspect]
     Active Substance: TRAMADOL
     Dosage: 50 MG/1 ML TRAMADOL
     Route: 065
  3. DICLOFENAC [Concomitant]
     Active Substance: DICLOFENAC
     Indication: MUSCULOSKELETAL PAIN
     Route: 065
  4. TRAMADOL. [Suspect]
     Active Substance: TRAMADOL
     Dosage: ONCE IN 2-3 DAYS
     Route: 065

REACTIONS (8)
  - Drug withdrawal syndrome [Unknown]
  - Cold sweat [Unknown]
  - Overdose [Unknown]
  - Unresponsive to stimuli [Recovered/Resolved]
  - Injection site abscess [Unknown]
  - Drug abuse [Recovered/Resolved]
  - Respiratory rate decreased [Unknown]
  - Drug dependence [Recovered/Resolved]
